FAERS Safety Report 26072551 (Version 2)
Quarter: 2025Q4

REPORT INFORMATION
  Report Type: Spontaneous
  Country: US (occurrence: US)
  Receive Date: 20251120
  Receipt Date: 20251205
  Transmission Date: 20260118
  Serious: Yes (Life-Threatening, Hospitalization, Other)
  Sender: ALKEM
  Company Number: None

PATIENT
  Age: 30 Year
  Sex: Female

DRUGS (2)
  1. QUETIAPINE FUMARATE [Suspect]
     Active Substance: QUETIAPINE FUMARATE
     Indication: Product used for unknown indication
     Dosage: UNK
     Route: 048
  2. LORAZEPAM [Concomitant]
     Active Substance: LORAZEPAM
     Indication: Product used for unknown indication
     Dosage: UNK
     Route: 048

REACTIONS (11)
  - Status epilepticus [Recovered/Resolved]
  - Electrocardiogram QRS complex prolonged [Unknown]
  - Oxygen saturation decreased [Recovering/Resolving]
  - Hyperthermia [Recovering/Resolving]
  - Nystagmus [Unknown]
  - Clonus [Unknown]
  - Myoclonus [Unknown]
  - Electrocardiogram QT prolonged [Unknown]
  - Sinus tachycardia [Unknown]
  - Toxicity to various agents [Recovering/Resolving]
  - Overdose [Unknown]
